FAERS Safety Report 14840044 (Version 1)
Quarter: 2018Q2

REPORT INFORMATION
  Report Type: Spontaneous
  Country: US (occurrence: US)
  Receive Date: 20180503
  Receipt Date: 20180503
  Transmission Date: 20180711
  Serious: No
  Sender: FDA-Public Use
  Company Number: US-JNJFOC-20180412598

PATIENT
  Age: 69 Year
  Sex: Male

DRUGS (4)
  1. ASPIRIN. [Concomitant]
     Active Substance: ASPIRIN
     Indication: ANTICOAGULANT THERAPY
     Dosage: HAS BEEN TAKING FOR 2-3 YEARS; STOPPED 4-5 DAYS AT THE TIME OF THE REPORT
     Route: 065
  2. ADVIL [Concomitant]
     Active Substance: IBUPROFEN
     Indication: BACK PAIN
     Dosage: 3-6 CAPSULES PER DAY FOR NOT MORE THAN 6 DAYS.
     Route: 048
     Dates: start: 20170902, end: 20170910
  3. TYLENOL WITH CODEINE [Suspect]
     Active Substance: ACETAMINOPHEN\CODEINE PHOSPHATE
     Indication: PRODUCT USED FOR UNKNOWN INDICATION
     Dosage: 300MG/30MG
     Route: 065
     Dates: start: 20170902, end: 20170903
  4. ASPIRIN. [Concomitant]
     Active Substance: ASPIRIN
     Indication: CARDIAC DISORDER
     Dosage: HAS BEEN TAKING FOR 2-3 YEARS; STOPPED 4-5 DAYS AT THE TIME OF THE REPORT
     Route: 065

REACTIONS (2)
  - Dizziness [Recovered/Resolved]
  - Constipation [Recovered/Resolved]

NARRATIVE: CASE EVENT DATE: 201709
